FAERS Safety Report 17568692 (Version 2)
Quarter: 2020Q2

REPORT INFORMATION
  Report Type: Report from Study
  Country: US (occurrence: US)
  Receive Date: 20200321
  Receipt Date: 20200507
  Transmission Date: 20200713
  Serious: No
  Sender: FDA-Public Use
  Company Number: NVSC2020US076475

PATIENT
  Age: 6 Year
  Sex: Male

DRUGS (2)
  1. ILARIS [Suspect]
     Active Substance: CANAKINUMAB
     Indication: PNEUMONIA
     Dosage: 75 MG, UNKNOWN (EVERY 8 WEEKS)
     Route: 058
  2. ILARIS [Suspect]
     Active Substance: CANAKINUMAB
     Dosage: UNK UNK, UNKNOWN
     Route: 065
     Dates: start: 20200313

REACTIONS (2)
  - Pharyngitis streptococcal [Unknown]
  - Malaise [Unknown]

NARRATIVE: CASE EVENT DATE: 20200314
